FAERS Safety Report 11765828 (Version 2)
Quarter: 2015Q4

REPORT INFORMATION
  Report Type: Report from Study
  Country: EC (occurrence: EC)
  Receive Date: 20151121
  Receipt Date: 20151216
  Transmission Date: 20160304
  Serious: Yes (Hospitalization)
  Sender: FDA-Public Use
  Company Number: PHHY2015EC151715

PATIENT
  Age: 13 Year
  Sex: Female
  Weight: 38 kg

DRUGS (1)
  1. EXJADE [Suspect]
     Active Substance: DEFERASIROX
     Indication: SICKLE CELL ANAEMIA
     Dosage: 30 MG/KG, QD (2 DF BID)
     Route: 048
     Dates: start: 20150805

REACTIONS (4)
  - Headache [Recovered/Resolved]
  - Salivary gland pain [Unknown]
  - White blood cell count decreased [Recovered/Resolved]
  - Noninfective sialoadenitis [Unknown]

NARRATIVE: CASE EVENT DATE: 20151104
